FAERS Safety Report 21141276 (Version 1)
Quarter: 2022Q3

REPORT INFORMATION
  Report Type: Report from Study
  Country: JP (occurrence: JP)
  Receive Date: 20220728
  Receipt Date: 20220728
  Transmission Date: 20221026
  Serious: Yes (Other)
  Sender: FDA-Public Use
  Company Number: JP-PFIZER INC-202200997144

PATIENT

DRUGS (1)
  1. IRINOTECAN HYDROCHLORIDE [Suspect]
     Active Substance: IRINOTECAN HYDROCHLORIDE
     Indication: Gastrointestinal carcinoma
     Dosage: FIXED DOSE OF 150 MG/M2, EVERY 14-DAY CYCLE, FOR ONLY TWO CYCLES
     Route: 042

REACTIONS (2)
  - Decreased appetite [Unknown]
  - Fatigue [Unknown]
